FAERS Safety Report 5155335-4 (Version None)
Quarter: 2006Q4

REPORT INFORMATION
  Report Type: 
  Country: None (occurrence: None)
  Receive Date: 20061121
  Receipt Date: 20061024
  Transmission Date: 20070319
  Serious: Yes (Hospitalization)
  Sender: FDA-Public Use
  Company Number: US-BRISTOL-MYERS SQUIBB COMPANY-13554605

PATIENT
  Age: 46 Year
  Sex: Female
  Weight: 84 kg

DRUGS (21)
  1. CETUXIMAB [Suspect]
     Indication: CERVIX CARCINOMA
     Route: 042
     Dates: start: 20060914, end: 20060914
  2. CISPLATIN [Suspect]
     Indication: CERVIX CARCINOMA
     Dates: start: 20060914, end: 20060914
  3. RADIOTHERAPY [Suspect]
     Indication: CERVIX CARCINOMA
     Dates: start: 20060907, end: 20060907
  4. DOXYCYCLINE [Concomitant]
     Route: 048
  5. ROSIGLITAZONE [Concomitant]
     Route: 048
  6. DOCUSATE [Concomitant]
     Route: 048
  7. DEXAMETHASONE TAB [Concomitant]
     Route: 048
  8. METOPROLOL [Concomitant]
     Route: 048
  9. LISINOPRIL [Concomitant]
     Route: 048
  10. NISOLDIPINE [Concomitant]
     Route: 048
  11. CLONIDINE [Concomitant]
     Route: 048
  12. OXYCODONE HCL [Concomitant]
     Route: 048
  13. LORAZEPAM [Concomitant]
     Indication: NAUSEA
     Dosage: 0.5-1.0 MG Q 4-6 HRS PRN
     Route: 048
  14. APREPITANT [Concomitant]
  15. CLINDAMYCIN [Concomitant]
     Indication: DERMATITIS ACNEIFORM
  16. IBUPROFEN [Concomitant]
     Indication: PAIN
     Route: 048
  17. OXYCODONE HCL + ACETAMINOPHEN [Concomitant]
     Indication: PAIN
     Route: 048
  18. PROCHLORPERAZINE [Concomitant]
     Indication: NAUSEA
     Route: 048
  19. INSULIN SLIDING SCALE [Concomitant]
     Indication: BLOOD GLUCOSE INCREASED
  20. METOCLOPRAMIDE [Concomitant]
     Route: 048
  21. RANITIDINE [Concomitant]
     Route: 048

REACTIONS (7)
  - BILE DUCT STENOSIS [None]
  - BILIARY SEPSIS [None]
  - CHOLANGITIS [None]
  - DEEP VEIN THROMBOSIS [None]
  - ENTERITIS [None]
  - PNEUMONIA KLEBSIELLA [None]
  - SMALL INTESTINAL OBSTRUCTION [None]
